FAERS Safety Report 8512019-X (Version None)
Quarter: 2012Q2

REPORT INFORMATION
  Report Type: 
  Country: None (occurrence: None)
  Receive Date: 20120405
  Receipt Date: 20080915
  Transmission Date: 20120825
  Serious: Yes (Disabling)
  Sender: FDA-Public Use
  Company Number: PHEH2008US06904

PATIENT
  Age: 64 Year
  Sex: Female
  Weight: 45.5 kg

DRUGS (6)
  1. MIRAPEX [Concomitant]
  2. RITALIN [Concomitant]
  3. RECLAST [Suspect]
     Dosage: ONCE SINGLE USE, INFUSION
     Dates: start: 20080630, end: 20080630
  4. .. [Concomitant]
  5. DURAGESIC-100 [Concomitant]
  6. NEURONTIN [Concomitant]

REACTIONS (10)
  - BONE PAIN [None]
  - ARTHRALGIA [None]
  - PAIN [None]
  - EATING DISORDER [None]
  - MYALGIA [None]
  - MUSCULOSKELETAL STIFFNESS [None]
  - OEDEMA PERIPHERAL [None]
  - ABDOMINAL PAIN UPPER [None]
  - PAIN IN EXTREMITY [None]
  - INSOMNIA [None]
